FAERS Safety Report 7210531-7 (Version None)
Quarter: 2011Q1

REPORT INFORMATION
  Report Type: 
  Country: None (occurrence: None)
  Receive Date: 20110105
  Receipt Date: 20110104
  Transmission Date: 20110831
  Serious: Yes (Hospitalization)
  Sender: FDA-Public Use
  Company Number: CO-ROCHE-750786

PATIENT
  Sex: Male

DRUGS (5)
  1. FOLIC ACID [Concomitant]
     Indication: RHEUMATOID ARTHRITIS
     Dosage: FREQUENCY REPORTED: QD
     Route: 048
  2. ACTEMRA [Suspect]
     Route: 042
     Dates: start: 20101023
  3. ACTEMRA [Suspect]
     Route: 042
     Dates: start: 20101123, end: 20101123
  4. ACTEMRA [Suspect]
     Indication: RHEUMATOID ARTHRITIS
     Route: 042
     Dates: start: 20100830
  5. ACTEMRA [Suspect]
     Route: 042
     Dates: start: 20100928

REACTIONS (2)
  - PNEUMONIA [None]
  - ARRHYTHMIA [None]
